FAERS Safety Report 8382484 (Version 2)
Quarter: 2013Q1

REPORT INFORMATION
  Report Type: Report from Study
  Country: FI (occurrence: FI)
  Receive Date: 20120201
  Receipt Date: 20130103
  Transmission Date: 20140127
  Serious: Yes (Hospitalization)
  Sender: FDA-Public Use
  Company Number: PHHO2011FI00948

PATIENT
  Age: 49 Year
  Sex: Male
  Weight: 84.6 kg

DRUGS (3)
  1. NAPROXEN [Suspect]
     Indication: OSTEOARTHRITIS
     Dosage: 500 MG, BID
     Dates: start: 20101213
  2. OMEPRAZOLE [Suspect]
  3. PLACEBO [Suspect]

REACTIONS (1)
  - Tooth infection [Recovering/Resolving]
